FAERS Safety Report 7548040-8 (Version None)
Quarter: 2011Q2

REPORT INFORMATION
  Report Type: 
  Country: None (occurrence: None)
  Receive Date: 20110608
  Receipt Date: 20110525
  Transmission Date: 20111010
  Serious: Yes (Hospitalization)
  Sender: FDA-Public Use
  Company Number: TPA2011A02575

PATIENT
  Age: 67 Year
  Sex: Male

DRUGS (2)
  1. COLCHICINE [Concomitant]
  2. ADENURIC (FEBUXOSTAT) [Suspect]
     Indication: HYPERURICAEMIA
     Dosage: 80 MG (80 MG, 1 IN 1 D), ORAL
     Route: 048
     Dates: start: 20101001, end: 20110210

REACTIONS (3)
  - ANAEMIA [None]
  - EPISTAXIS [None]
  - HYPERTENSIVE CRISIS [None]
